FAERS Safety Report 7467956-4 (Version None)
Quarter: 2011Q2

REPORT INFORMATION
  Report Type: 
  Country: None (occurrence: None)
  Receive Date: 20110509
  Receipt Date: 20110502
  Transmission Date: 20111010
  Serious: Yes (Other)
  Sender: FDA-Public Use
  Company Number: US-AMGEN-USASP2011022781

PATIENT
  Age: 50 Year
  Sex: Female

DRUGS (1)
  1. ENBREL [Suspect]
     Indication: RHEUMATOID ARTHRITIS
     Dosage: 50 MG, QWK
     Dates: start: 20110305

REACTIONS (6)
  - EAR PAIN [None]
  - CERUMEN IMPACTION [None]
  - EAR DISCOMFORT [None]
  - DEPRESSION [None]
  - RASH [None]
  - INJECTION SITE HAEMATOMA [None]
